FAERS Safety Report 11388063 (Version 1)
Quarter: 2015Q3

REPORT INFORMATION
  Report Type: Spontaneous
  Country: US (occurrence: US)
  Receive Date: 20150817
  Receipt Date: 20150817
  Transmission Date: 20151125
  Serious: Yes (Hospitalization)
  Sender: FDA-Public Use
  Company Number: US-ACTELION PHARMACEUTICALS US, INC.-A-US2015-122290

PATIENT
  Age: 51 Year
  Sex: Female

DRUGS (1)
  1. VELETRI [Suspect]
     Active Substance: EPOPROSTENOL
     Indication: PULMONARY HYPERTENSION
     Dosage: 40 NG/KG, PER MIN
     Route: 042
     Dates: start: 20100712

REACTIONS (7)
  - Infusion site inflammation [Unknown]
  - Catheter placement [Unknown]
  - Device alarm issue [Unknown]
  - Device dislocation [Unknown]
  - Device malfunction [Unknown]
  - Infusion site erythema [Unknown]
  - Infusion site warmth [Unknown]
